FAERS Safety Report 16456856 (Version 4)
Quarter: 2019Q3

REPORT INFORMATION
  Report Type: Report from Study
  Country: US (occurrence: US)
  Receive Date: 20190620
  Receipt Date: 20190929
  Transmission Date: 20191004
  Serious: Yes (Other)
  Sender: FDA-Public Use
  Company Number: PHEH2019US025295

PATIENT
  Sex: Male

DRUGS (1)
  1. ENTRESTO [Suspect]
     Active Substance: SACUBITRIL\VALSARTAN
     Indication: CARDIAC FAILURE
     Dosage: UNK UNK, BID
     Route: 048

REACTIONS (8)
  - Stress [Unknown]
  - Ventricular tachycardia [Unknown]
  - Weight decreased [Recovering/Resolving]
  - Gait inability [Unknown]
  - Anxiety [Unknown]
  - Fear [Recovered/Resolved]
  - Dizziness [Unknown]
  - Heart rate abnormal [Unknown]
